FAERS Safety Report 5228135-4 (Version None)
Quarter: 2007Q1

REPORT INFORMATION
  Report Type: 
  Country: None (occurrence: None)
  Receive Date: 20070130
  Receipt Date: 20061130
  Transmission Date: 20070707
  Serious: Yes (Death)
  Sender: FDA-Public Use
  Company Number: T200601555

PATIENT

DRUGS (3)
  1. HYDROCODONE/ACETAMINOPHEN (HYDROCODONE BITARTRATE, ACETAMINOPHEN) TABL [Suspect]
  2. BENZONATATE [Suspect]
  3. ASPIRIN [Suspect]

REACTIONS (2)
  - CARDIO-RESPIRATORY ARREST [None]
  - COMPLETED SUICIDE [None]
